FAERS Safety Report 8454659-2 (Version None)
Quarter: 2012Q2

REPORT INFORMATION
  Report Type: 
  Country: None (occurrence: None)
  Receive Date: 20120621
  Receipt Date: 20120615
  Transmission Date: 20120825
  Serious: Yes (Hospitalization, Other)
  Sender: FDA-Public Use
  Company Number: US-AMGEN-USASP2011043610

PATIENT
  Age: 44 Year
  Sex: Female
  Weight: 64.853 kg

DRUGS (9)
  1. DIFLUCAN [Concomitant]
     Dosage: 150 MG, UNK
     Route: 048
  2. NSAID'S [Concomitant]
     Dosage: UNK
  3. ALLEGRA-D 12 HOUR [Concomitant]
     Dosage: UNK
  4. ENBREL [Suspect]
     Indication: PSORIASIS
     Dosage: 50 MG, QWK
     Route: 058
     Dates: start: 20030101, end: 20110716
  5. VOLTAREN [Concomitant]
     Dosage: UNK UNK, PRN
     Route: 061
  6. BONIVA [Concomitant]
     Dosage: 150 MG, QMO
     Route: 048
  7. CELEBREX [Concomitant]
     Dosage: 100 MG, BID
     Route: 048
  8. WELLBUTRIN [Concomitant]
     Dosage: 100 MG, QD
     Route: 048
  9. ASPIRIN [Concomitant]
     Dosage: 325 MG, UNK

REACTIONS (16)
  - GALLBLADDER DISORDER [None]
  - COLONIC POLYP [None]
  - FATIGUE [None]
  - PRECANCEROUS MUCOSAL LESION [None]
  - HAEMOGLOBIN INCREASED [None]
  - PSORIATIC ARTHROPATHY [None]
  - ROTATOR CUFF SYNDROME [None]
  - BURSITIS [None]
  - ABDOMINAL PAIN [None]
  - GALLBLADDER POLYP [None]
  - HAEMATOCHEZIA [None]
  - INTESTINAL POLYP HAEMORRHAGE [None]
  - LYMPHADENOPATHY [None]
  - POLYCYTHAEMIA [None]
  - MUSCULOSKELETAL PAIN [None]
  - HAEMATOCRIT INCREASED [None]
